FAERS Safety Report 11916389 (Version 2)
Quarter: 2017Q2

REPORT INFORMATION
  Report Type: Spontaneous
  Country: CA (occurrence: CA)
  Receive Date: 20160114
  Receipt Date: 20170627
  Transmission Date: 20170829
  Serious: Yes (Life-Threatening)
  Sender: FDA-Public Use
  Company Number: CA-SA-2016SA004992

PATIENT
  Age: 77 Year
  Sex: Male

DRUGS (6)
  1. DOCETAXEL. [Suspect]
     Active Substance: DOCETAXEL
     Indication: LUNG NEOPLASM MALIGNANT
     Dosage: FOR 10 CYCLES.
     Route: 042
     Dates: start: 20160106, end: 20160106
  2. PREDNISONE. [Concomitant]
     Active Substance: PREDNISONE
     Route: 065
     Dates: start: 20160106
  3. RYTHMODAN [Suspect]
     Active Substance: DISOPYRAMIDE
     Indication: CARDIAC DISORDER
     Dosage: STRENGTH: 100 MG?EXTRA DOSE TAKEN.
     Route: 048
  4. ELIGARD [Suspect]
     Active Substance: LEUPROLIDE ACETATE
     Indication: PROSTATE CANCER
     Route: 058
  5. DOCETAXEL. [Suspect]
     Active Substance: DOCETAXEL
     Indication: LUNG NEOPLASM MALIGNANT
     Dosage: FOR 10 CYCLES.
     Route: 042
  6. RYTHMODAN [Suspect]
     Active Substance: DISOPYRAMIDE
     Indication: CARDIAC DISORDER
     Dosage: DOSE: 200MG IN MORNING AND 300 MG AT BEDTIME.?STRENGTH: 100 MG
     Route: 048
     Dates: start: 2003, end: 201601

REACTIONS (4)
  - Metastases to lung [Not Recovered/Not Resolved]
  - Blood pressure increased [Not Recovered/Not Resolved]
  - Heart rate irregular [Not Recovered/Not Resolved]
  - Heart rate increased [Not Recovered/Not Resolved]

NARRATIVE: CASE EVENT DATE: 2015
